FAERS Safety Report 24414867 (Version 3)
Quarter: 2025Q1

REPORT INFORMATION
  Report Type: Spontaneous
  Country: JP (occurrence: JP)
  Receive Date: 20241009
  Receipt Date: 20250204
  Transmission Date: 20250408
  Serious: Yes (Death, Hospitalization)
  Sender: SANOFI AVENTIS
  Company Number: JP-SA-2024SA289031

PATIENT
  Age: 62 Year

DRUGS (8)
  1. REZUROCK [Suspect]
     Active Substance: BELUMOSUDIL
     Indication: Chronic graft versus host disease
     Dosage: 200 MG, QD
     Route: 048
     Dates: start: 20240814, end: 20240930
  2. VONOPRAZAN FUMARATE [Concomitant]
     Active Substance: VONOPRAZAN FUMARATE
     Indication: Chronic gastritis
     Dosage: 10 MG, QD
     Route: 048
     Dates: start: 20211125, end: 20240930
  3. ACYCLOVIR [Concomitant]
     Active Substance: ACYCLOVIR
     Indication: Antiviral prophylaxis
     Dosage: 200 MG, QD
     Route: 048
     Dates: start: 20210708, end: 20240930
  4. PREDONINE [Concomitant]
     Active Substance: PREDNISOLONE
     Indication: Chronic graft versus host disease
     Dosage: 5 MG, QD
     Route: 048
     Dates: start: 20221014, end: 20240930
  5. MONTELUKAST SODIUM [Concomitant]
     Active Substance: MONTELUKAST SODIUM
     Indication: Cough
     Dosage: 10 MG, QD
     Route: 048
     Dates: start: 20230508, end: 20240930
  6. SULFAMETHOXAZOLE\TRIMETHOPRIM [Concomitant]
     Active Substance: SULFAMETHOXAZOLE\TRIMETHOPRIM
     Indication: Antifungal prophylaxis
     Dosage: 0.5 DF, QD
     Route: 048
     Dates: start: 20210706, end: 20240930
  7. AMLODIPINE [Concomitant]
     Active Substance: AMLODIPINE BESYLATE
     Indication: Hypertension
     Dosage: 5 MG, QD
     Route: 048
     Dates: start: 20231116, end: 20240930
  8. PREGABALIN [Concomitant]
     Active Substance: PREGABALIN
     Indication: Post herpetic neuralgia
     Dosage: 25 MG, QD
     Route: 048
     Dates: start: 20221014, end: 20240930

REACTIONS (2)
  - Obliterative bronchiolitis [Fatal]
  - Respiratory syncytial virus infection [Fatal]

NARRATIVE: CASE EVENT DATE: 20240922
